FAERS Safety Report 21115536 (Version 1)
Quarter: 2022Q3

REPORT INFORMATION
  Report Type: Spontaneous
  Country: FR (occurrence: None)
  Receive Date: 20220721
  Receipt Date: 20220721
  Transmission Date: 20221027
  Serious: Yes (Hospitalization)
  Sender: FDA-Public Use
  Company Number: 2022A254225

PATIENT
  Age: 29 Year
  Sex: Female
  Weight: 57.6 kg

DRUGS (4)
  1. QUETIAPINE FUMARATE [Suspect]
     Active Substance: QUETIAPINE FUMARATE
     Indication: Anxiety
     Route: 048
     Dates: start: 2019, end: 20210601
  2. LOXAPINE [Suspect]
     Active Substance: LOXAPINE
     Indication: Anxiety
     Dosage: 25MG 3F PER DAY
     Route: 065
     Dates: start: 20210507, end: 20210604
  3. FLUVOXAMINE [Suspect]
     Active Substance: FLUVOXAMINE
     Indication: Anxiety
     Route: 065
     Dates: start: 2019, end: 20210601
  4. ALPRAZOLAM [Concomitant]
     Active Substance: ALPRAZOLAM

REACTIONS (1)
  - Serotonin syndrome [Recovering/Resolving]

NARRATIVE: CASE EVENT DATE: 20210601
